FAERS Safety Report 23070391 (Version 3)
Quarter: 2023Q4

REPORT INFORMATION
  Report Type: Spontaneous
  Country: US (occurrence: US)
  Receive Date: 20231016
  Receipt Date: 20231213
  Transmission Date: 20240110
  Serious: Yes (Hospitalization)
  Sender: FDA-Public Use
  Company Number: US-PFIZER INC-202300322319

PATIENT
  Age: 81 Year
  Sex: Male
  Weight: 92.53 kg

DRUGS (15)
  1. VYNDAMAX [Suspect]
     Active Substance: TAFAMIDIS
     Indication: Cardiac amyloidosis
     Dosage: 61 MG, 1X/DAY
  2. METOPROLOL [Concomitant]
     Active Substance: METOPROLOL
     Dosage: 25 MG
  3. DOCUSATE [Concomitant]
     Active Substance: DOCUSATE
     Dosage: 20 MG, 2X/DAY
     Route: 048
  4. ACETAMINOPHEN [Concomitant]
     Active Substance: ACETAMINOPHEN
     Dosage: 500 MG, 4X/DAY
  5. CLOVIMAX [Concomitant]
     Dosage: UNK
  6. DICLOFENAC [Concomitant]
     Active Substance: DICLOFENAC
     Dosage: UNK
  7. ELIQUIS [Concomitant]
     Active Substance: APIXABAN
     Dosage: 4 MG, 2X/DAY
  8. FUROSEMAX [Concomitant]
     Dosage: UNK
  9. GABAPENTIN [Concomitant]
     Active Substance: GABAPENTIN
     Dosage: 200 MG, 3X/DAY
     Route: 048
  10. LORATADINE [Concomitant]
     Active Substance: LORATADINE
     Dosage: 10 MG, DAILY
     Route: 048
  11. METHOCARBAMOL [Concomitant]
     Active Substance: METHOCARBAMOL
     Dosage: 500 MG, 3X/DAY
     Route: 048
  12. RETINOL [Concomitant]
     Active Substance: RETINOL
     Dosage: 3000 UG, 2X/WEEK
  13. SPIRONOLACTONE [Concomitant]
     Active Substance: SPIRONOLACTONE
     Dosage: 12.5 MG
  14. TRAZODONE [Concomitant]
     Active Substance: TRAZODONE HYDROCHLORIDE
     Dosage: 50 MG (AT NIGHT)
  15. TIZANIDINE [Concomitant]
     Active Substance: TIZANIDINE
     Dosage: 24 MG, 2X/DAY

REACTIONS (4)
  - Spinal osteoarthritis [Unknown]
  - Spondylitis [Unknown]
  - Infection [Unknown]
  - Monoparesis [Unknown]
